FAERS Safety Report 5549677-8 (Version None)
Quarter: 2007Q4

REPORT INFORMATION
  Report Type: 
  Country: None (occurrence: None)
  Receive Date: 20071212
  Receipt Date: 20071207
  Transmission Date: 20080405
  Serious: Yes (Hospitalization)
  Sender: FDA-Public Use
  Company Number: DE-WYE-G00634107

PATIENT
  Sex: Female
  Weight: 60 kg

DRUGS (3)
  1. VENLAFAXINE HCL [Suspect]
     Dosage: 50 CAPSULES (OVERDOSE AMOUNT 3750 MG)
     Route: 048
     Dates: start: 20071117, end: 20071117
  2. OPIPRAMOL [Suspect]
     Dosage: 10 TABLETS (OVERDOSE AMOUNT 1000 MG)
     Route: 048
     Dates: start: 20071117, end: 20071117
  3. MIRTAZAPINE [Suspect]
     Dosage: 50 TABLETS (OVERDOSE AMOUNT 1500 MG)
     Route: 048
     Dates: start: 20071117, end: 20071117

REACTIONS (8)
  - BLOOD PRESSURE SYSTOLIC INCREASED [None]
  - CONVULSION [None]
  - DYSPNOEA [None]
  - GASTROINTESTINAL SOUNDS ABNORMAL [None]
  - INTENTIONAL OVERDOSE [None]
  - SOMNOLENCE [None]
  - SOPOR [None]
  - TACHYCARDIA [None]
